FAERS Safety Report 12309013 (Version 1)
Quarter: 2016Q2

REPORT INFORMATION
  Report Type: Spontaneous
  Country: US (occurrence: US)
  Receive Date: 20160427
  Receipt Date: 20160427
  Transmission Date: 20160815
  Serious: No
  Sender: FDA-Public Use
  Company Number: US-009507513-1604USA015589

PATIENT
  Age: 49 Year
  Sex: Female

DRUGS (1)
  1. GRASTEK [Suspect]
     Active Substance: PHLEUM PRATENSE POLLEN
     Indication: HYPERSENSITIVITY
     Dosage: 1 TABLET, QD
     Route: 060
     Dates: start: 20160407, end: 20160415

REACTIONS (6)
  - Mouth swelling [Recovering/Resolving]
  - Otorrhoea [Recovering/Resolving]
  - Rhinorrhoea [Recovering/Resolving]
  - Oral pruritus [Recovering/Resolving]
  - Rash [Recovering/Resolving]
  - Pain [Recovered/Resolved]

NARRATIVE: CASE EVENT DATE: 201604
